FAERS Safety Report 11528718 (Version 1)
Quarter: 2015Q3

REPORT INFORMATION
  Report Type: Spontaneous
  Country: US (occurrence: US)
  Receive Date: 20150921
  Receipt Date: 20150921
  Transmission Date: 20151125
  Serious: No
  Sender: FDA-Public Use
  Company Number: US-TEVA-524942USA

PATIENT
  Sex: Male
  Weight: 64.47 kg

DRUGS (10)
  1. VITAMIN B6 [Concomitant]
     Active Substance: PYRIDOXINE HYDROCHLORIDE
     Indication: FATIGUE
  2. LIPOSIC [Concomitant]
     Active Substance: CARBOMER
     Indication: FATIGUE
  3. PROVIGIL [Suspect]
     Active Substance: MODAFINIL
     Indication: BASEDOW^S DISEASE
  4. LIOTHYRONINE [Concomitant]
     Active Substance: LIOTHYRONINE
     Indication: THYROID DISORDER
  5. ZETIA [Concomitant]
     Active Substance: EZETIMIBE
     Indication: HYPOTHYROIDISM
  6. VITAMIN B12 [Concomitant]
     Active Substance: CYANOCOBALAMIN
     Indication: FATIGUE
  7. PROVIGIL [Suspect]
     Active Substance: MODAFINIL
     Indication: SLEEP APNOEA SYNDROME
  8. SODIUM CHLORIDE. [Concomitant]
     Active Substance: SODIUM CHLORIDE
     Indication: FATIGUE
  9. CHROMIUM [Concomitant]
     Active Substance: CHROMIC CHLORIDE\CHROMIUM
     Indication: FATIGUE
  10. SYNTHROID [Concomitant]
     Active Substance: LEVOTHYROXINE SODIUM
     Indication: THYROID DISORDER

REACTIONS (5)
  - Fatigue [Not Recovered/Not Resolved]
  - Asthenia [Not Recovered/Not Resolved]
  - Blood cortisol increased [Unknown]
  - Drug ineffective [Unknown]
  - Irritability [Unknown]
